FAERS Safety Report 6706906-2 (Version None)
Quarter: 2010Q2

REPORT INFORMATION
  Report Type: 
  Country: None (occurrence: None)
  Receive Date: 20100430
  Receipt Date: 20100430
  Transmission Date: 20101027
  Serious: Yes (Life-Threatening, Hospitalization, Disabling, Other)
  Sender: FDA-Public Use
  Company Number: None

PATIENT
  Age: 48 Year
  Sex: Male
  Weight: 70.3075 kg

DRUGS (4)
  1. SEROQUEL [Suspect]
     Indication: SLEEP DISORDER
     Dosage: 400MG DAILY PO
     Route: 048
     Dates: start: 20070716, end: 20100228
  2. PROZAC [Suspect]
     Indication: MAJOR DEPRESSION
     Dosage: 40MG DAILY PO
     Route: 048
     Dates: start: 20070716, end: 20090228
  3. SEROQUEL [Concomitant]
  4. PROZAC [Concomitant]

REACTIONS (6)
  - HYPERSOMNIA [None]
  - INSOMNIA [None]
  - MANIA [None]
  - MULTIPLE DRUG OVERDOSE [None]
  - SOMNOLENCE [None]
  - WEIGHT DECREASED [None]
